FAERS Safety Report 4469490-2 (Version None)
Quarter: 2004Q4

REPORT INFORMATION
  Report Type: 
  Country: None (occurrence: None)
  Receive Date: 20041005
  Receipt Date: 20040922
  Transmission Date: 20050328
  Serious: Yes (Other)
  Sender: FDA-Public Use
  Company Number: 2004069059

PATIENT
  Sex: Female
  Weight: 70.3075 kg

DRUGS (3)
  1. ZYRTEC [Suspect]
     Indication: MULTIPLE ALLERGIES
     Dosage: 10 MG (10 MG, 1 IN 1 D), ORAL
     Route: 048
     Dates: start: 20040101
  2. FEXOFENADINE HYDROCHLORIDE [Suspect]
     Indication: MULTIPLE SCLEROSIS
     Dosage: 10 MG (10 MG, 1 IN 1 D), ORAL
     Route: 048
     Dates: start: 20040101
  3. LORATADINE [Suspect]
     Indication: MULTIPLE ALLERGIES

REACTIONS (4)
  - CONSTIPATION [None]
  - ENDOMETRIOSIS [None]
  - LACTOSE INTOLERANCE [None]
  - RASH [None]
